FAERS Safety Report 7830328-4 (Version None)
Quarter: 2011Q4

REPORT INFORMATION
  Report Type: 
  Country: None (occurrence: None)
  Receive Date: 20111021
  Receipt Date: 20111013
  Transmission Date: 20120403
  Serious: Yes (Hospitalization, Other)
  Sender: FDA-Public Use
  Company Number: US-BRISTOL-MYERS SQUIBB COMPANY-13414966

PATIENT
  Age: 71 Year
  Sex: Female
  Weight: 59 kg

DRUGS (3)
  1. NOVADEX [Concomitant]
  2. AVAPRO [Suspect]
     Indication: HYPERTENSION
     Dosage: ALSO TAKEN 150MG LOT NO.1F65074A EXP:03OCT2012 ALSO STARTED ON 18OCT11
     Dates: start: 20010101
  3. HYDROCHLOROTHIAZIDE [Concomitant]
     Dosage: STARTED 3 YRS AGO
     Route: 048

REACTIONS (8)
  - ASTHENIA [None]
  - CHILLS [None]
  - CATARACT [None]
  - BLOOD PRESSURE INCREASED [None]
  - EYELID OPERATION [None]
  - MUSCULAR WEAKNESS [None]
  - BREAST CANCER [None]
  - DIZZINESS [None]
